FAERS Safety Report 25501657 (Version 2)
Quarter: 2025Q3

REPORT INFORMATION
  Report Type: Spontaneous
  Country: US (occurrence: US)
  Receive Date: 20250701
  Receipt Date: 20250714
  Transmission Date: 20251020
  Serious: Yes (Other)
  Sender: AMGEN
  Company Number: US-AMGEN-USASP2025124915

PATIENT
  Age: 71 Year
  Sex: Female

DRUGS (14)
  1. TEPEZZA [Suspect]
     Active Substance: TEPROTUMUMAB-TRBW
     Indication: Endocrine ophthalmopathy
     Dosage: 975 MILLIGRAM, Q3WK  (10 MG/KG OVER 90 MIN)(FIRST INFUSION)
     Route: 040
     Dates: start: 20220720, end: 20220720
  2. TEPEZZA [Suspect]
     Active Substance: TEPROTUMUMAB-TRBW
     Indication: Graves^ disease
     Dosage: 1954 MILLIGRAM, Q3WK (20 MG/KG OVER 90 MIN)(SECOND DOSE)
     Route: 040
     Dates: start: 20220810, end: 20220810
  3. TEPEZZA [Suspect]
     Active Substance: TEPROTUMUMAB-TRBW
     Indication: Toxic goitre
     Dosage: 1923 MILLIGRAM, Q3WK (20 MG/KG) (THIRD DOSE)
     Route: 040
     Dates: start: 20220831, end: 20220831
  4. TEPEZZA [Suspect]
     Active Substance: TEPROTUMUMAB-TRBW
     Dosage: 1900 MILLIGRAM, Q3WK (20 MG/KG) (FOURTH DOSE)
     Route: 040
     Dates: start: 20220921, end: 20220921
  5. TEPEZZA [Suspect]
     Active Substance: TEPROTUMUMAB-TRBW
     Dosage: 1900 MILLIGRAM, Q3WK (20 MG/KG) (FOURTH DOSE)
     Route: 040
     Dates: start: 20220921, end: 20220921
  6. LEVOTHYROXINE [Concomitant]
     Active Substance: LEVOTHYROXINE
     Dosage: UNK, QD
     Route: 065
  7. FOSAMAX [Concomitant]
     Active Substance: ALENDRONATE SODIUM
     Dosage: UNK, QWK
     Route: 048
  8. LISINOPRIL [Concomitant]
     Active Substance: LISINOPRIL
     Dosage: UNK, QD
     Route: 048
  9. STERILE WATER [Concomitant]
     Active Substance: WATER
     Route: 065
  10. STERILE WATER [Concomitant]
     Active Substance: WATER
     Route: 065
  11. SODIUM CHLORIDE [Concomitant]
     Active Substance: SODIUM CHLORIDE
     Route: 065
  12. SODIUM CHLORIDE [Concomitant]
     Active Substance: SODIUM CHLORIDE
     Route: 065
  13. SODIUM CHLORIDE [Concomitant]
     Active Substance: SODIUM CHLORIDE
     Route: 065
  14. Artificial tears [Concomitant]
     Route: 065

REACTIONS (18)
  - Deafness neurosensory [Not Recovered/Not Resolved]
  - Exophthalmos [Recovering/Resolving]
  - Breast cancer [Unknown]
  - Endocrine ophthalmopathy [Unknown]
  - Graves^ disease [Unknown]
  - Tinnitus [Not Recovered/Not Resolved]
  - Muscle spasms [Recovering/Resolving]
  - Nail bed disorder [Recovering/Resolving]
  - Arthritis [Unknown]
  - Body temperature decreased [Unknown]
  - Dyspnoea exertional [Unknown]
  - Dry eye [Unknown]
  - Pain [Unknown]
  - Emotional distress [Unknown]
  - Anxiety [Unknown]
  - Impaired quality of life [Unknown]
  - Discomfort [Unknown]
  - Product use complaint [Unknown]

NARRATIVE: CASE EVENT DATE: 20220810
